FAERS Safety Report 18988745 (Version 1)
Quarter: 2021Q1

REPORT INFORMATION
  Report Type: Spontaneous
  Country: US (occurrence: US)
  Receive Date: 20210309
  Receipt Date: 20210309
  Transmission Date: 20210420
  Serious: Yes (Hospitalization)
  Sender: FDA-Public Use
  Company Number: US-JNJFOC-20210303547

PATIENT

DRUGS (1)
  1. NEUTROGENA TGEL THERAPEUTIC [Suspect]
     Active Substance: COAL TAR
     Indication: PSORIASIS
     Route: 065

REACTIONS (1)
  - Dandruff [Not Recovered/Not Resolved]

NARRATIVE: CASE EVENT DATE: 20000101
